FAERS Safety Report 15737771 (Version 4)
Quarter: 2019Q2

REPORT INFORMATION
  Report Type: Spontaneous
  Country: BR (occurrence: BR)
  Receive Date: 20181219
  Receipt Date: 20190418
  Transmission Date: 20190711
  Serious: Yes (Other)
  Sender: FDA-Public Use
  Company Number: BR-ABBVIE-18K-020-2596205-00

PATIENT
  Age: 48 Year
  Sex: Female
  Weight: 49 kg

DRUGS (7)
  1. PAROXETINE. [Concomitant]
     Active Substance: PAROXETINE
     Indication: DEPRESSION
     Route: 048
     Dates: start: 2013
  2. LUMIGAN [Concomitant]
     Active Substance: BIMATOPROST
     Indication: OPTIC NERVE DISORDER
     Route: 050
     Dates: start: 2013
  3. EVENING PRIMROSE OIL [Concomitant]
     Active Substance: EVENING PRIMROSE OIL\HERBALS
     Indication: MENOPAUSE
     Route: 048
     Dates: start: 2008
  4. HUMIRA [Suspect]
     Active Substance: ADALIMUMAB
     Indication: ARTHRITIS
     Route: 058
  5. HUMIRA [Suspect]
     Active Substance: ADALIMUMAB
     Indication: CROHN^S DISEASE
     Dosage: LOADING DOSE WEEK 0
     Route: 058
     Dates: start: 20171215, end: 201712
  6. HUMIRA [Suspect]
     Active Substance: ADALIMUMAB
     Route: 058
     Dates: end: 20181214
  7. VITAMIN D2 [Concomitant]
     Active Substance: ERGOCALCIFEROL
     Indication: PRODUCT USED FOR UNKNOWN INDICATION
     Route: 048

REACTIONS (8)
  - Urinary tract infection [Unknown]
  - Blood prolactin increased [Not Recovered/Not Resolved]
  - Pituitary tumour [Unknown]
  - Breast mass [Not Recovered/Not Resolved]
  - Pituitary cyst [Unknown]
  - Pneumonia [Unknown]
  - Immunodeficiency [Unknown]
  - Sinusitis [Unknown]

NARRATIVE: CASE EVENT DATE: 201810
